FAERS Safety Report 10018365 (Version 2)
Quarter: 2014Q1

REPORT INFORMATION
  Report Type: Spontaneous
  Country: JP (occurrence: JP)
  Receive Date: 20140318
  Receipt Date: 20140324
  Transmission Date: 20141002
  Serious: Yes (Other)
  Sender: FDA-Public Use
  Company Number: JP-009507513-1403JPN007048

PATIENT
  Age: 49 Year
  Sex: Female

DRUGS (5)
  1. EMEND [Suspect]
     Indication: PROPHYLAXIS OF NAUSEA AND VOMITING
     Dosage: STRENGTH REPORTED AS: 80 MG, 125 MG, DAILY DOSE: 125 MG
     Route: 048
     Dates: start: 20140310
  2. CARBOPLATIN [Concomitant]
     Dosage: UNK
     Dates: start: 20140310
  3. PACLITAXEL [Concomitant]
     Dosage: UNK
     Dates: start: 20140310
  4. LAMICTAL [Concomitant]
     Dosage: UNK
     Dates: start: 20140310
  5. DEPAKENE [Concomitant]
     Dosage: UNK
     Dates: start: 20140310

REACTIONS (1)
  - Convulsion [Recovered/Resolved]
